FAERS Safety Report 6397460-6 (Version None)
Quarter: 2009Q4

REPORT INFORMATION
  Report Type: 
  Country: None (occurrence: None)
  Receive Date: 20091012
  Receipt Date: 20091008
  Transmission Date: 20100525
  Serious: Yes (Death, Hospitalization)
  Sender: FDA-Public Use
  Company Number: PHHY2009BE37528

PATIENT
  Age: 55 Year
  Sex: Male

DRUGS (3)
  1. NEORAL [Suspect]
     Indication: LUNG TRANSPLANT
     Dosage: UNK
  2. CERTICAN [Suspect]
     Indication: LUNG TRANSPLANT
     Dosage: UNK
  3. TACROLIMUS [Suspect]
     Indication: LUNG TRANSPLANT

REACTIONS (5)
  - ABDOMINAL PAIN [None]
  - HAEMOLYTIC URAEMIC SYNDROME [None]
  - INFECTION [None]
  - MICROANGIOPATHY [None]
  - RENAL IMPAIRMENT [None]
